FAERS Safety Report 19365799 (Version 1)
Quarter: 2021Q2

REPORT INFORMATION
  Report Type: Report from Study
  Country: US (occurrence: US)
  Receive Date: 20210602
  Receipt Date: 20210602
  Transmission Date: 20210717
  Serious: No
  Sender: FDA-Public Use
  Company Number: US-DOVA PHARMACEUTICALS INC.-DOV-000786

PATIENT
  Age: 77 Year
  Sex: Female

DRUGS (3)
  1. IV?GLOBULIN [Concomitant]
     Indication: IMMUNE THROMBOCYTOPENIA
  2. DOPTELET [Suspect]
     Active Substance: AVATROMBOPAG MALEATE
     Indication: IMMUNE THROMBOCYTOPENIA
     Dosage: 20 MILLIGRAM, QD
     Route: 048
  3. NPLATE [Concomitant]
     Active Substance: ROMIPLOSTIM
     Indication: IMMUNE THROMBOCYTOPENIA

REACTIONS (2)
  - Platelet count abnormal [Unknown]
  - Platelet count increased [Unknown]

NARRATIVE: CASE EVENT DATE: 20201222
